FAERS Safety Report 17991632 (Version 1)
Quarter: 2020Q3

REPORT INFORMATION
  Report Type: Spontaneous
  Country: US (occurrence: US)
  Receive Date: 20200707
  Receipt Date: 20200707
  Transmission Date: 20201103
  Serious: No
  Sender: FDA-Public Use
  Company Number: US-TARO-2019TAR00758

PATIENT
  Sex: Female
  Weight: 66.67 kg

DRUGS (5)
  1. LIPITOR [Concomitant]
     Active Substance: ATORVASTATIN CALCIUM
  2. PREMARIN [Concomitant]
     Active Substance: ESTROGENS, CONJUGATED
  3. CLOBETASOL PROPIONATE CREAM USP 0.05% (EMOLLIENT) [Suspect]
     Active Substance: CLOBETASOL PROPIONATE
     Dosage: UNK UNK, 1X/WEEK
     Route: 061
     Dates: start: 2019
  4. SERTRALINE [Concomitant]
     Active Substance: SERTRALINE HYDROCHLORIDE
  5. CLOBETASOL PROPIONATE CREAM USP 0.05% (EMOLLIENT) [Suspect]
     Active Substance: CLOBETASOL PROPIONATE
     Indication: LICHEN SCLEROSUS
     Dosage: UNK
     Route: 061
     Dates: start: 201909, end: 2019

REACTIONS (8)
  - Application site pruritus [Recovering/Resolving]
  - Vulvovaginal pain [Recovering/Resolving]
  - Application site erythema [Recovering/Resolving]
  - Inappropriate schedule of product administration [Not Recovered/Not Resolved]
  - Vulvovaginal mycotic infection [Not Recovered/Not Resolved]
  - Application site irritation [Recovering/Resolving]
  - Incorrect product administration duration [Not Recovered/Not Resolved]
  - Product administered at inappropriate site [Not Recovered/Not Resolved]

NARRATIVE: CASE EVENT DATE: 2019
